FAERS Safety Report 7198479-8 (Version None)
Quarter: 2010Q4

REPORT INFORMATION
  Report Type: 
  Country: None (occurrence: None)
  Receive Date: 20101223
  Receipt Date: 20101223
  Transmission Date: 20110411
  Serious: No
  Sender: FDA-Public Use
  Company Number: None

PATIENT
  Age: 46 Year
  Sex: Female
  Weight: 136.0791 kg

DRUGS (3)
  1. CIPROFLOXACIN HCL [Suspect]
     Indication: INFECTION
     Dosage: 1 PILL BID PO
     Route: 048
     Dates: start: 20101215, end: 20101216
  2. CIPROFLOXACIN HCL [Suspect]
     Indication: NOROVIRUS TEST POSITIVE
     Dosage: 1 PILL BID PO
     Route: 048
     Dates: start: 20101215, end: 20101216
  3. DAYQUIL [Concomitant]

REACTIONS (2)
  - PRURITUS [None]
  - URTICARIA [None]
